FAERS Safety Report 20721378 (Version 2)
Quarter: 2022Q2

REPORT INFORMATION
  Report Type: Spontaneous
  Country: US (occurrence: US)
  Receive Date: 20220418
  Receipt Date: 20220511
  Transmission Date: 20220721
  Serious: No
  Sender: FDA-Public Use
  Company Number: US-TEVA-2022-US-2027030

PATIENT
  Sex: Female

DRUGS (4)
  1. NABUMETONE [Suspect]
     Active Substance: NABUMETONE
     Indication: Back disorder
     Route: 065
     Dates: start: 2019, end: 2020
  2. NABUMETONE [Suspect]
     Active Substance: NABUMETONE
     Indication: Back pain
  3. NABUMETONE [Suspect]
     Active Substance: NABUMETONE
     Indication: Arthritis
  4. CLOBETASOL PROPIONATE [Concomitant]
     Active Substance: CLOBETASOL PROPIONATE

REACTIONS (3)
  - Therapeutic product effect incomplete [Unknown]
  - Product use in unapproved indication [Unknown]
  - Headache [Unknown]
